FAERS Safety Report 24345148 (Version 1)
Quarter: 2024Q3

REPORT INFORMATION
  Report Type: Spontaneous
  Country: US (occurrence: None)
  Receive Date: 20240920
  Receipt Date: 20240920
  Transmission Date: 20241017
  Serious: Yes (Hospitalization, Other)
  Sender: Public
  Company Number: None

PATIENT
  Age: 41 Year
  Sex: Male
  Weight: 87.75 kg

DRUGS (6)
  1. VANCOMYCIN [Suspect]
     Active Substance: VANCOMYCIN
     Indication: Ulcerative keratitis
     Dosage: 2 DROPS TWICE A DAY OPHTHALMIC
     Route: 047
     Dates: start: 20240913, end: 20240916
  2. TOBRAMYCIN SULFATE [Suspect]
     Active Substance: TOBRAMYCIN SULFATE
  3. Bijk [Concomitant]
  4. VALACYCLOVIR [Concomitant]
     Active Substance: VALACYCLOVIR HYDROCHLORIDE
  5. SILDENAFIL [Concomitant]
     Active Substance: SILDENAFIL
  6. adherall [Concomitant]

REACTIONS (2)
  - Abnormal sensation in eye [None]
  - Eye injury [None]

NARRATIVE: CASE EVENT DATE: 20240913
